FAERS Safety Report 25974000 (Version 3)
Quarter: 2025Q4

REPORT INFORMATION
  Report Type: Spontaneous
  Country: EU (occurrence: EU)
  Receive Date: 20251029
  Receipt Date: 20251124
  Transmission Date: 20260117
  Serious: Yes (Other)
  Sender: MYLAN
  Company Number: EU-MYLANLABS-2025M1090108

PATIENT
  Sex: Male

DRUGS (6)
  1. PREGABALIN [Suspect]
     Active Substance: PREGABALIN
     Indication: Anxiety disorder
     Dosage: UNK
  2. PREGABALIN [Suspect]
     Active Substance: PREGABALIN
     Indication: Major depression
     Dosage: 600 MILLIGRAM, QD
  3. PREGABALIN [Suspect]
     Active Substance: PREGABALIN
     Dosage: 200 MILLIGRAM, TID (THREE TIMES A DAY)
  4. PREGABALIN [Suspect]
     Active Substance: PREGABALIN
     Dosage: 300 MILLIGRAM, BID (MORNING AND NOON)
  5. PREGABALIN [Suspect]
     Active Substance: PREGABALIN
     Dosage: UNK, QD (900-1000 MG PER DAY)
  6. PREGABALIN [Suspect]
     Active Substance: PREGABALIN
     Dosage: 1000 MILLIGRAM, QD (2 CAPSULES OF 300 MG IN THE MORNING, 1 CAPSULE OF 300 MG AT MIDDAY AND 1 CAPSULE OF 100 MG IN THE EVENING)

REACTIONS (2)
  - Intentional product use issue [Unknown]
  - No adverse event [Recovered/Resolved]
